FAERS Safety Report 20087866 (Version 2)
Quarter: 2021Q4

REPORT INFORMATION
  Report Type: Spontaneous
  Country: JP (occurrence: JP)
  Receive Date: 20211118
  Receipt Date: 20211129
  Transmission Date: 20220304
  Serious: Yes (Other)
  Sender: FDA-Public Use
  Company Number: JP-TEVA-2021-JP-1978868

PATIENT
  Age: 7 Decade
  Sex: Female

DRUGS (10)
  1. IRINOTECAN [Suspect]
     Active Substance: IRINOTECAN
     Indication: Colorectal cancer
     Dosage: 165MG/M2 ON DAY 1 BOLUS
     Route: 050
  2. IRINOTECAN [Suspect]
     Active Substance: IRINOTECAN
     Dosage: 165MG/M2 EVERY 2 WEEKS BOLUS
     Route: 050
  3. OXALIPLATIN [Suspect]
     Active Substance: OXALIPLATIN
     Indication: Colorectal cancer
     Dosage: 85MG/M2 DAY 1, EVERY 2 WEEKS
     Route: 065
  4. OXALIPLATIN [Suspect]
     Active Substance: OXALIPLATIN
     Route: 065
  5. GIMERACIL\OTERACIL\TEGAFUR [Suspect]
     Active Substance: GIMERACIL\OTERACIL\TEGAFUR
     Indication: Colorectal cancer
     Dosage: 100MG
     Route: 065
  6. BEVACIZUMAB [Suspect]
     Active Substance: BEVACIZUMAB
     Indication: Colorectal cancer
     Dosage: 5MG/KG EVERY 2 WEEKS
     Route: 065
  7. FLUOROURACIL [Suspect]
     Active Substance: FLUOROURACIL
     Indication: Colorectal cancer
     Dosage: 3200MG/M2 FOR 46 HOURS FROM DAY 1, EVERY 2 WEEKS
     Route: 065
  8. FLUOROURACIL [Suspect]
     Active Substance: FLUOROURACIL
     Route: 065
  9. LEVOLEUCOVORIN CALCIUM [Concomitant]
     Active Substance: LEVOLEUCOVORIN CALCIUM
     Indication: Chemotherapy side effect prophylaxis
     Dosage: 200MG/M2 DAY 1, EVERY 2 WEEKS
     Route: 065
  10. LEVOLEUCOVORIN CALCIUM [Concomitant]
     Active Substance: LEVOLEUCOVORIN CALCIUM
     Route: 065

REACTIONS (4)
  - Hypertriglyceridaemia [Recovered/Resolved]
  - Diarrhoea [Unknown]
  - Nausea [Unknown]
  - Fatigue [Unknown]
